FAERS Safety Report 4750626-0 (Version None)
Quarter: 2005Q3

REPORT INFORMATION
  Report Type: 
  Country: None (occurrence: None)
  Receive Date: 20050818
  Receipt Date: 20050812
  Transmission Date: 20060218
  Serious: Yes (Other)
  Sender: FDA-Public Use
  Company Number: DE-2005-013020

PATIENT
  Sex: Male

DRUGS (1)
  1. BETAFERON (INTERFERON BETA - 1B) INJECTION, 250 MICROG [Suspect]
     Dosage: SUBCUTANEOUS
     Route: 058

REACTIONS (1)
  - MUSCLE RUPTURE [None]
